FAERS Safety Report 6824677-6 (Version None)
Quarter: 2010Q3

REPORT INFORMATION
  Report Type: 
  Country: None (occurrence: None)
  Receive Date: 20100708
  Receipt Date: 20061113
  Transmission Date: 20110219
  Serious: No
  Sender: FDA-Public Use
  Company Number: US-PFIZER INC-2006140828

PATIENT
  Age: 56 Year
  Sex: Female

DRUGS (10)
  1. CHANTIX [Suspect]
     Indication: SMOKING CESSATION THERAPY
     Route: 048
     Dates: start: 20061107
  2. HYDROCHLOROTHIAZIDE [Concomitant]
  3. ATENOLOL [Concomitant]
  4. LIPITOR [Concomitant]
  5. SEREVENT [Concomitant]
  6. LIBRIUM [Concomitant]
  7. ELAVIL [Concomitant]
  8. GLUCOPHAGE [Concomitant]
  9. ZESTRIL [Concomitant]
  10. PRILOSEC [Concomitant]

REACTIONS (6)
  - ABDOMINAL PAIN [None]
  - DYSPNOEA [None]
  - ERUCTATION [None]
  - FATIGUE [None]
  - FLATULENCE [None]
  - NAUSEA [None]
